FAERS Safety Report 8972334 (Version 2)
Quarter: 2013Q3

REPORT INFORMATION
  Report Type: Report from Study
  Country: DE (occurrence: DE)
  Receive Date: 20121219
  Receipt Date: 20130916
  Transmission Date: 20140515
  Serious: Yes (Hospitalization)
  Sender: FDA-Public Use
  Company Number: DE-JNJFOC-20121208351

PATIENT
  Age: 80 Year
  Sex: Female
  Weight: 75 kg

DRUGS (13)
  1. PALEXIA RETARD [Suspect]
     Indication: PAIN
     Route: 065
     Dates: start: 20101031, end: 20101102
  2. ACETYLSALICYLIC ACID [Concomitant]
     Route: 048
  3. TORASEMID [Concomitant]
     Route: 048
  4. XIPAMID [Concomitant]
     Route: 048
  5. L-THYROX [Concomitant]
     Route: 048
  6. METOPROLOL SUCCINATE [Concomitant]
     Route: 065
  7. NOVOMIX [Concomitant]
     Route: 065
  8. LERCANIDIPINE [Concomitant]
     Route: 048
  9. SIMVASTATIN [Concomitant]
     Route: 065
  10. ARCOXIA [Concomitant]
     Route: 065
  11. NOVALGIN [Concomitant]
     Route: 065
  12. CITALOPRAM [Concomitant]
     Route: 065
  13. SITAGLIPTIN [Concomitant]
     Route: 065

REACTIONS (5)
  - Confusional state [Recovering/Resolving]
  - Delusion [Recovering/Resolving]
  - Aggression [Recovered/Resolved]
  - Hallucination [Recovering/Resolving]
  - Disorientation [Recovering/Resolving]
